FAERS Safety Report 9219292 (Version 1)
Quarter: 2013Q2

REPORT INFORMATION
  Report Type: Spontaneous
  Country: US (occurrence: None)
  Receive Date: 20130408
  Receipt Date: 20130408
  Transmission Date: 20140414
  Serious: Yes (Death)
  Sender: FDA-Public Use
  Company Number: None

PATIENT
  Age: 70 Year
  Sex: Male
  Weight: 80 kg

DRUGS (2)
  1. BELATACEPT [Suspect]
     Indication: PROPHYLAXIS AGAINST TRANSPLANT REJECTION
     Route: 042
     Dates: start: 20130114
  2. PREDNISONE [Concomitant]

REACTIONS (7)
  - Mental status changes [None]
  - Respiratory failure [None]
  - Pneumocystis jirovecii pneumonia [None]
  - General physical health deterioration [None]
  - Renal impairment [None]
  - Cardiac arrest [None]
  - Pulseless electrical activity [None]
